FAERS Safety Report 12342413 (Version 1)
Quarter: 2016Q2

REPORT INFORMATION
  Report Type: Spontaneous
  Country: IT (occurrence: IT)
  Receive Date: 20160506
  Receipt Date: 20160506
  Transmission Date: 20160815
  Serious: Yes (Hospitalization)
  Sender: FDA-Public Use
  Company Number: IT-BAYER-2016-086098

PATIENT
  Age: 77 Year
  Sex: Male

DRUGS (7)
  1. FLECTADOL [Concomitant]
     Active Substance: ACETAMINOPHEN\CHLORZOXAZONE
     Dosage: DAILY DOSE 250 MG
     Route: 042
  2. CARDIOASPIRIN [Suspect]
     Active Substance: ASPIRIN
     Dosage: DAILY DOSE 100 MG
     Route: 048
     Dates: start: 20151210, end: 20160414
  3. MYCOSTATIN [Concomitant]
     Active Substance: NYSTATIN
     Indication: LUNG INFECTION
     Dosage: UNK
     Route: 048
     Dates: start: 20160411, end: 20160414
  4. PIPERACILLIN AND TAZOBACTAM [Concomitant]
     Active Substance: PIPERACILLIN SODIUM\TAZOBACTAM SODIUM
     Indication: LUNG INFECTION
     Dosage: DAILY DOSE 4.5 G
     Route: 042
  5. BREVA [Concomitant]
     Active Substance: ALBUTEROL\IPRATROPIUM
     Indication: LUNG INFECTION
     Dosage: UNK
     Route: 055
     Dates: start: 20160411, end: 20160414
  6. SELEPARINA [Suspect]
     Active Substance: NADROPARIN CALCIUM
     Dosage: DAILY DOSE .4 ML
     Route: 058
     Dates: start: 20160411, end: 20160414
  7. LEVOFLOXACIN. [Concomitant]
     Active Substance: LEVOFLOXACIN
     Indication: LUNG INFECTION
     Dosage: DAILY DOSE 500 MG
     Route: 048

REACTIONS (2)
  - Hypotension [Recovering/Resolving]
  - Epistaxis [Recovering/Resolving]

NARRATIVE: CASE EVENT DATE: 20160414
